FAERS Safety Report 23450560 (Version 1)
Quarter: 2024Q1

REPORT INFORMATION
  Report Type: Spontaneous
  Country: US (occurrence: None)
  Receive Date: 20240129
  Receipt Date: 20240129
  Transmission Date: 20240409
  Serious: No
  Sender: FDA-Public Use
  Company Number: 2024A012687

PATIENT
  Sex: Female

DRUGS (1)
  1. TAGRISSO [Suspect]
     Active Substance: OSIMERTINIB
     Route: 048

REACTIONS (5)
  - Skin exfoliation [Recovered/Resolved]
  - Diarrhoea [Recovered/Resolved]
  - Onychoclasis [Recovered/Resolved]
  - Product use issue [Unknown]
  - Inability to afford medication [Unknown]
